FAERS Safety Report 15533835 (Version 5)
Quarter: 2020Q1

REPORT INFORMATION
  Report Type: Spontaneous
  Country: US (occurrence: US)
  Receive Date: 20181019
  Receipt Date: 20200213
  Transmission Date: 20200409
  Serious: Yes (Hospitalization, Other)
  Sender: FDA-Public Use
  Company Number: US-PFIZER INC-2018418594

PATIENT
  Sex: Female
  Weight: 31 kg

DRUGS (5)
  1. REVATIO [Suspect]
     Active Substance: SILDENAFIL CITRATE
     Dosage: 10 ML, 3X/DAY
     Route: 048
     Dates: start: 2018
  2. REVATIO [Suspect]
     Active Substance: SILDENAFIL CITRATE
     Indication: PULMONARY HYPERTENSION
     Dosage: 5 ML, 3X/DAY
     Route: 048
  3. REVATIO [Suspect]
     Active Substance: SILDENAFIL CITRATE
     Dosage: 1 ML, 3X/DAY
  4. REVATIO [Suspect]
     Active Substance: SILDENAFIL CITRATE
     Dosage: 10 MG, UNK
     Dates: start: 20180614
  5. REVATIO [Suspect]
     Active Substance: SILDENAFIL CITRATE
     Dosage: 10 MG/ML

REACTIONS (6)
  - Off label use [Unknown]
  - Product use issue [Unknown]
  - Intentional product misuse [Unknown]
  - Spinal cord disorder [Recovered/Resolved]
  - Product dose omission [Unknown]
  - Malaise [Unknown]

NARRATIVE: CASE EVENT DATE: 201807
